FAERS Safety Report 24629234 (Version 3)
Quarter: 2025Q3

REPORT INFORMATION
  Report Type: Spontaneous
  Country: US (occurrence: US)
  Receive Date: 20241118
  Receipt Date: 20250902
  Transmission Date: 20251021
  Serious: No
  Sender: ROCHE
  Company Number: US-ROCHE-10000131865

PATIENT
  Sex: Male

DRUGS (2)
  1. HEMLIBRA [Suspect]
     Active Substance: EMICIZUMAB-KXWH
     Indication: Von Willebrand^s disease
     Dosage: STRENGTH: 105MG/0.7ML
     Route: 058
     Dates: start: 202406
  2. HEMLIBRA [Suspect]
     Active Substance: EMICIZUMAB-KXWH
     Indication: Factor VIII deficiency
     Dosage: STRENGTH: 105MG/.7ML
     Route: 058
     Dates: start: 202406

REACTIONS (2)
  - Mouth haemorrhage [Not Recovered/Not Resolved]
  - Off label use [Unknown]
